FAERS Safety Report 13447995 (Version 1)
Quarter: 2017Q2

REPORT INFORMATION
  Report Type: Spontaneous
  Country: IN (occurrence: IN)
  Receive Date: 20170417
  Receipt Date: 20170417
  Transmission Date: 20170830
  Serious: Yes (Life-Threatening, Other)
  Sender: FDA-Public Use
  Company Number: IN-JUBILANT CADISTA PHARMACEUTICALS-2017JUB00105

PATIENT
  Age: 46 Year
  Sex: Female
  Weight: 70 kg

DRUGS (13)
  1. FENTANYL. [Concomitant]
     Active Substance: FENTANYL
     Dosage: 100 UNK, UNK
     Route: 065
  2. MIDAZOLAM [Concomitant]
     Active Substance: MIDAZOLAM HYDROCHLORIDE
     Dosage: 1 MG, UNK
     Route: 065
  3. NICARDIPINE [Suspect]
     Active Substance: NICARDIPINE
     Indication: HYPERTENSION
     Dosage: 20 MG, 2X/DAY
     Route: 065
  4. PRAZOSIN. [Suspect]
     Active Substance: PRAZOSIN
     Indication: HYPERTENSION
     Dosage: 2.5 MG, 1X/DAY
     Route: 065
  5. THYROXINE SODIUM [Concomitant]
     Active Substance: LEVOTHYROXINE SODIUM
     Dosage: 100 ?G, 1X/DAY
     Route: 065
  6. NITROUS OXIDE. [Concomitant]
     Active Substance: NITROUS OXIDE
     Route: 065
  7. ATENOLOL. [Suspect]
     Active Substance: ATENOLOL
     Indication: HYPERTENSION
     Dosage: 25 MG, 1X/DAY
     Route: 065
  8. PROPOFOL. [Concomitant]
     Active Substance: PROPOFOL
     Dosage: 140 MG, UNK
     Route: 065
  9. OXYGEN. [Concomitant]
     Active Substance: OXYGEN
     Route: 065
  10. LOSARTAN POTASSIUM. [Suspect]
     Active Substance: LOSARTAN POTASSIUM
     Indication: HYPERTENSION
     Dosage: 50 MG, 2X/DAY
     Route: 065
  11. CEFUROXIME. [Suspect]
     Active Substance: CEFUROXIME
     Dosage: 750 MG, UNK
     Route: 042
  12. VECURONIUM [Concomitant]
     Active Substance: VECURONIUM BROMIDE
     Dosage: 6 MG, UNK
     Route: 042
  13. ISOFLURANE. [Concomitant]
     Active Substance: ISOFLURANE
     Route: 065

REACTIONS (2)
  - Drug interaction [Recovered/Resolved]
  - Anaphylactic shock [Recovered/Resolved]
